FAERS Safety Report 17508026 (Version 1)
Quarter: 2020Q1

REPORT INFORMATION
  Report Type: Spontaneous
  Country: FR (occurrence: FR)
  Receive Date: 20200306
  Receipt Date: 20200306
  Transmission Date: 20200409
  Serious: Yes (Hospitalization)
  Sender: FDA-Public Use
  Company Number: NVSC2020FR062509

PATIENT
  Age: 68 Year
  Sex: Female

DRUGS (2)
  1. VENLAFAXINE [Suspect]
     Active Substance: VENLAFAXINE HYDROCHLORIDE
     Indication: DEPRESSION
     Route: 048
     Dates: start: 20190925
  2. QUETIAPINE. [Suspect]
     Active Substance: QUETIAPINE
     Indication: DEPRESSION
     Dosage: 300 MG
     Route: 048
     Dates: start: 20190920

REACTIONS (2)
  - Hepatocellular injury [Recovering/Resolving]
  - Cholestasis [Unknown]

NARRATIVE: CASE EVENT DATE: 20191007
